FAERS Safety Report 18466570 (Version 1)
Quarter: 2020Q4

REPORT INFORMATION
  Report Type: Spontaneous
  Country: JP (occurrence: JP)
  Receive Date: 20201104
  Receipt Date: 20201104
  Transmission Date: 20210114
  Serious: Yes (Other)
  Sender: FDA-Public Use
  Company Number: JP-SA-2020SA307335

PATIENT

DRUGS (2)
  1. LANTUS SOLOSTAR [Suspect]
     Active Substance: INSULIN GLARGINE
     Indication: PRODUCT USED FOR UNKNOWN INDICATION
     Dosage: 10 UNITS
     Route: 058
     Dates: start: 202006
  2. LANTUS SOLOSTAR [Suspect]
     Active Substance: INSULIN GLARGINE
     Dosage: 7 UNITS/DAY
     Route: 058
     Dates: start: 2020

REACTIONS (4)
  - Decreased appetite [Unknown]
  - Haemoglobin decreased [Recovering/Resolving]
  - Nausea [Unknown]
  - Melaena [Unknown]

NARRATIVE: CASE EVENT DATE: 202007
